FAERS Safety Report 16271646 (Version 1)
Quarter: 2019Q2

REPORT INFORMATION
  Report Type: Spontaneous
  Country: US (occurrence: US)
  Receive Date: 20190503
  Receipt Date: 20190503
  Transmission Date: 20190711
  Serious: Yes (Other)
  Sender: FDA-Public Use
  Company Number: US-ASTRAZENECA-2019SE67475

PATIENT
  Age: 951 Month
  Sex: Female
  Weight: 72.1 kg

DRUGS (5)
  1. TAGRISSO [Suspect]
     Active Substance: OSIMERTINIB
     Indication: LUNG CARCINOMA CELL TYPE UNSPECIFIED STAGE IV
     Route: 048
     Dates: start: 201812
  2. ELIQUIS [Concomitant]
     Active Substance: APIXABAN
     Indication: PULMONARY EMBOLISM
     Route: 048
  3. METOPROLOL SUCCINATE. [Suspect]
     Active Substance: METOPROLOL SUCCINATE
     Indication: HYPERTENSION
     Route: 048
  4. TAGRISSO [Suspect]
     Active Substance: OSIMERTINIB
     Indication: LUNG CARCINOMA CELL TYPE UNSPECIFIED STAGE IV
     Route: 048
     Dates: start: 201806
  5. LOSARTAN AND HYDROCHLOROTHIAZIDE [Concomitant]
     Active Substance: HYDROCHLOROTHIAZIDE\LOSARTAN POTASSIUM

REACTIONS (13)
  - Pulmonary embolism [Recovered/Resolved]
  - Onychoclasis [Unknown]
  - Pulmonary hypertension [Recovered/Resolved]
  - Diarrhoea [Unknown]
  - Dizziness [Recovered/Resolved]
  - Skin injury [Unknown]
  - Dehydration [Unknown]
  - Pollakiuria [Unknown]
  - Abdominal pain upper [Unknown]
  - Hypotension [Recovered/Resolved]
  - Oropharyngeal discomfort [Not Recovered/Not Resolved]
  - Pharyngeal disorder [Not Recovered/Not Resolved]
  - Muscle spasms [Unknown]

NARRATIVE: CASE EVENT DATE: 201812
